FAERS Safety Report 23730967 (Version 1)
Quarter: 2024Q2

REPORT INFORMATION
  Report Type: Spontaneous
  Country: US (occurrence: US)
  Receive Date: 20240411
  Receipt Date: 20240411
  Transmission Date: 20240716
  Serious: Yes (Other)
  Sender: FDA-Public Use
  Company Number: None

PATIENT
  Age: 75 Year
  Sex: Male

DRUGS (1)
  1. ESTRADIOL [Suspect]
     Active Substance: ESTRADIOL
     Indication: Oestrogen therapy
     Dosage: 40 YEARS
     Route: 048

REACTIONS (8)
  - Pulmonary hypertension [Unknown]
  - Embolism venous [Unknown]
  - Cardiogenic shock [Unknown]
  - Left ventricular dysfunction [Unknown]
  - Coronary artery disease [Unknown]
  - Shock haemorrhagic [Unknown]
  - Pulmonary embolism [Unknown]
  - Tricuspid valve incompetence [Unknown]
